FAERS Safety Report 10221714 (Version 1)
Quarter: 2014Q2

REPORT INFORMATION
  Report Type: Spontaneous
  Country: US (occurrence: US)
  Receive Date: 20140606
  Receipt Date: 20140606
  Transmission Date: 20141212
  Serious: No
  Sender: FDA-Public Use
  Company Number: US-PFIZER INC-2014154670

PATIENT
  Age: 53 Year
  Sex: Male

DRUGS (1)
  1. CELEBREX [Suspect]
     Indication: BACK PAIN
     Dosage: UNK

REACTIONS (2)
  - Abdominal pain upper [Unknown]
  - Nausea [Unknown]
